FAERS Safety Report 11173335 (Version 1)
Quarter: 2015Q2

REPORT INFORMATION
  Report Type: Spontaneous
  Country: FR (occurrence: FR)
  Receive Date: 20150608
  Receipt Date: 20150608
  Transmission Date: 20150821
  Serious: Yes (Other)
  Sender: FDA-Public Use
  Company Number: FR-MYLANLABS-2015M1018484

PATIENT

DRUGS (7)
  1. VALPROMIDE [Concomitant]
     Active Substance: VALPROMIDE
     Indication: BIPOLAR DISORDER
     Dosage: 300MG
     Route: 065
  2. QUETIAPINE [Suspect]
     Active Substance: QUETIAPINE
     Dosage: 300MG ON THE THIRD DAY
     Route: 065
  3. LACTULOSE. [Concomitant]
     Active Substance: LACTULOSE
     Route: 065
  4. QUETIAPINE [Suspect]
     Active Substance: QUETIAPINE
     Indication: BIPOLAR DISORDER
     Dosage: 100MG
     Route: 065
  5. QUETIAPINE [Suspect]
     Active Substance: QUETIAPINE
     Dosage: 200MG ON THE SECOND DAY
     Route: 065
  6. PRAZEPAM [Concomitant]
     Active Substance: PRAZEPAM
     Indication: BIPOLAR DISORDER
     Dosage: 20MG
     Route: 065
  7. TROPATEPINE [Suspect]
     Active Substance: TROPATEPINE
     Indication: BIPOLAR DISORDER
     Route: 065

REACTIONS (1)
  - Colitis ischaemic [Recovered/Resolved]
